FAERS Safety Report 18544807 (Version 1)
Quarter: 2020Q4

REPORT INFORMATION
  Report Type: Spontaneous
  Country: US (occurrence: US)
  Receive Date: 20201124
  Receipt Date: 20201124
  Transmission Date: 20210114
  Serious: Yes (Hospitalization)
  Sender: FDA-Public Use
  Company Number: None

PATIENT
  Age: 59 Year
  Sex: Female
  Weight: 104.85 kg

DRUGS (9)
  1. HCTZ/TRIAMTERENE [Concomitant]
  2. PRAZOSIN. [Concomitant]
     Active Substance: PRAZOSIN
  3. SYNTHROID [Concomitant]
     Active Substance: LEVOTHYROXINE SODIUM
  4. FLUOXETINE [Concomitant]
     Active Substance: FLUOXETINE HYDROCHLORIDE
  5. ZOFRAN [Suspect]
     Active Substance: ONDANSETRON HYDROCHLORIDE
     Indication: NAUSEA
     Route: 042
     Dates: start: 20201121, end: 20201121
  6. TOPAMAX [Concomitant]
     Active Substance: TOPIRAMATE
  7. ZOFRAN [Suspect]
     Active Substance: ONDANSETRON HYDROCHLORIDE
     Indication: DIZZINESS
     Route: 042
     Dates: start: 20201121, end: 20201121
  8. SLEEP APNEA MACHINE [Concomitant]
  9. BUPROPION. [Concomitant]
     Active Substance: BUPROPION

REACTIONS (3)
  - Cystitis [None]
  - Chest pain [None]
  - Heart rate decreased [None]

NARRATIVE: CASE EVENT DATE: 20201121
